FAERS Safety Report 4715172-9 (Version None)
Quarter: 2005Q3

REPORT INFORMATION
  Report Type: 
  Country: None (occurrence: None)
  Receive Date: 20050715
  Receipt Date: 20050705
  Transmission Date: 20060218
  Serious: Yes (Hospitalization)
  Sender: FDA-Public Use
  Company Number: RU-GLAXOSMITHKLINE-B0387679A

PATIENT
  Age: 37 Year
  Sex: Female
  Weight: 70 kg

DRUGS (1)
  1. AUGMENTIN '125' [Suspect]
     Route: 065
     Dates: start: 20050701, end: 20050701

REACTIONS (3)
  - HYPERSENSITIVITY [None]
  - OEDEMA [None]
  - URTICARIA [None]
